FAERS Safety Report 7209214-9 (Version None)
Quarter: 2011Q1

REPORT INFORMATION
  Report Type: 
  Country: None (occurrence: None)
  Receive Date: 20110104
  Receipt Date: 20101216
  Transmission Date: 20110831
  Serious: Yes (Hospitalization)
  Sender: FDA-Public Use
  Company Number: A0805720A

PATIENT
  Sex: Female

DRUGS (2)
  1. AVANDAMET [Suspect]
     Dosage: 1000MG TWICE PER DAY
     Route: 048
     Dates: start: 20040211, end: 20060214
  2. AVANDIA [Suspect]
     Dosage: 4MG PER DAY
     Route: 048
     Dates: start: 20050613, end: 20050829

REACTIONS (2)
  - TACHYCARDIA [None]
  - CHEST PAIN [None]
